FAERS Safety Report 6804671-1 (Version None)
Quarter: 2010Q2

REPORT INFORMATION
  Report Type: 
  Country: None (occurrence: None)
  Receive Date: 20100628
  Receipt Date: 20070619
  Transmission Date: 20101027
  Serious: No
  Sender: FDA-Public Use
  Company Number: US-PFIZER INC-2007030185

PATIENT
  Sex: Male
  Weight: 92.99 kg

DRUGS (6)
  1. ZIPRASIDONE HCL [Suspect]
     Indication: BIPOLAR DISORDER
     Dates: start: 20061101
  2. DEPAKOTE [Concomitant]
  3. AVANDAMET [Concomitant]
  4. AMARYL [Concomitant]
  5. OXYCODONE HCL [Concomitant]
  6. OXYCONTIN [Concomitant]

REACTIONS (6)
  - ABDOMINAL PAIN UPPER [None]
  - BLOOD GLUCOSE INCREASED [None]
  - HEADACHE [None]
  - NAUSEA [None]
  - RESTLESSNESS [None]
  - THERAPY REGIMEN CHANGED [None]
